FAERS Safety Report 13369962 (Version 1)
Quarter: 2017Q1

REPORT INFORMATION
  Report Type: Spontaneous
  Country: PL (occurrence: PL)
  Receive Date: 20170324
  Receipt Date: 20170324
  Transmission Date: 20170429
  Serious: Yes (Life-Threatening)
  Sender: FDA-Public Use
  Company Number: PL-PURDUE PHARMA-GBR-2017-0044222

PATIENT
  Age: 85 Year
  Sex: Female
  Weight: 80 kg

DRUGS (1)
  1. TARGIN [Suspect]
     Active Substance: NALOXONE HYDROCHLORIDE\OXYCODONE HYDROCHLORIDE
     Indication: CANCER PAIN
     Dosage: 20/10MG ONCE
     Route: 048
     Dates: start: 20170127, end: 20170127

REACTIONS (5)
  - Loss of consciousness [Recovered/Resolved]
  - Dyskinesia [Recovered/Resolved]
  - Head banging [Recovered/Resolved]
  - Seizure [Recovered/Resolved]
  - Illogical thinking [Recovered/Resolved]

NARRATIVE: CASE EVENT DATE: 20170127
